FAERS Safety Report 15089337 (Version 1)
Quarter: 2018Q2

REPORT INFORMATION
  Report Type: Spontaneous
  Country: US (occurrence: US)
  Receive Date: 20180629
  Receipt Date: 20180629
  Transmission Date: 20180711
  Serious: No
  Sender: FDA-Public Use
  Company Number: US-EGALET US INC-US-2017EGA000624

PATIENT

DRUGS (2)
  1. SPRIX [Suspect]
     Active Substance: KETOROLAC TROMETHAMINE
     Indication: MIGRAINE
     Dosage: ONE SPRAY IN EACH NOSTRIL EVERY 6 TO 8 HOURS AS NEEDED
     Route: 045
     Dates: start: 201704
  2. SPRIX [Suspect]
     Active Substance: KETOROLAC TROMETHAMINE
     Dosage: REDUCED DOSE (DIRECTIONS NOT TO USE SPRIX EVERY SINGLE TIME SHE HAD HEADACHE)
     Route: 045

REACTIONS (2)
  - Off label use [Unknown]
  - Contusion [Unknown]

NARRATIVE: CASE EVENT DATE: 201704
